FAERS Safety Report 4765306-5 (Version None)
Quarter: 2005Q3

REPORT INFORMATION
  Report Type: 
  Country: None (occurrence: None)
  Receive Date: 20050909
  Receipt Date: 20050510
  Transmission Date: 20060218
  Serious: Yes (Hospitalization)
  Sender: FDA-Public Use
  Company Number: US-MERCK-0505USA01527

PATIENT
  Age: 58 Year
  Sex: Female
  Weight: 136 kg

DRUGS (11)
  1. VIOXX [Suspect]
     Indication: CARTILAGE INJURY
     Route: 048
     Dates: start: 19991001, end: 20030101
  2. COUMADIN [Concomitant]
     Indication: THROMBOSIS
     Route: 065
  3. COUMADIN [Concomitant]
     Indication: VASCULITIS
     Route: 065
  4. DARVOCET-N 100 [Concomitant]
     Indication: PAIN
     Route: 065
     Dates: end: 19991001
  5. DARVOCET-N 100 [Concomitant]
     Route: 065
     Dates: start: 20030101
  6. PRINIVIL [Concomitant]
     Indication: HYPERTENSION
     Route: 065
     Dates: start: 19930101, end: 20030101
  7. LASIX [Concomitant]
     Indication: OEDEMA
     Route: 065
     Dates: start: 19930101
  8. LASIX [Concomitant]
     Indication: HYPERTENSION
     Route: 065
     Dates: start: 19930101
  9. TYLENOL [Concomitant]
     Indication: PAIN
     Route: 065
  10. ZOLOFT [Concomitant]
     Indication: DEPRESSION
     Route: 065
     Dates: start: 19890101, end: 20000101
  11. ZOLOFT [Concomitant]
     Indication: ANXIETY DISORDER
     Route: 065
     Dates: start: 19890101, end: 20000101

REACTIONS (13)
  - ABDOMINAL PAIN [None]
  - ANGINA PECTORIS [None]
  - CARDIAC DISORDER [None]
  - CARDIAC FAILURE CONGESTIVE [None]
  - CHEST PAIN [None]
  - CHRONIC OBSTRUCTIVE PULMONARY DISEASE [None]
  - DIZZINESS [None]
  - NAUSEA [None]
  - SLEEP APNOEA SYNDROME [None]
  - SYNCOPE [None]
  - THROMBOSIS [None]
  - UTERINE LEIOMYOMA [None]
  - VISION BLURRED [None]
